FAERS Safety Report 8176433-7 (Version None)
Quarter: 2012Q1

REPORT INFORMATION
  Report Type: 
  Country: None (occurrence: None)
  Receive Date: 20120117
  Receipt Date: 20111202
  Transmission Date: 20120608
  Serious: Yes (Other)
  Sender: FDA-Public Use
  Company Number: 2009009470

PATIENT

DRUGS (1)
  1. NUVIGIL [Suspect]
     Dosage: ORAL
     Route: 048
     Dates: start: 20090101

REACTIONS (2)
  - PSYCHOTIC DISORDER [None]
  - SUICIDAL IDEATION [None]
